FAERS Safety Report 15313037 (Version 2)
Quarter: 2018Q4

REPORT INFORMATION
  Report Type: Spontaneous
  Country: US (occurrence: US)
  Receive Date: 20180823
  Receipt Date: 20181026
  Transmission Date: 20190204
  Serious: Yes (Other)
  Sender: FDA-Public Use
  Company Number: US-TEVA-2018-US-945173

PATIENT
  Sex: Female

DRUGS (14)
  1. AREDS2 [Concomitant]
  2. ZINC. [Concomitant]
     Active Substance: ZINC
  3. VITAMIN D3 [Concomitant]
     Active Substance: CHOLECALCIFEROL
  4. VITAMIN B12 [Concomitant]
     Active Substance: CYANOCOBALAMIN
  5. ECOTRIN [Concomitant]
     Active Substance: ASPIRIN
  6. FOSINOPRIL [Suspect]
     Active Substance: FOSINOPRIL
     Dosage: 20 MILLIGRAM DAILY;
     Route: 065
  7. LEVOTHYROXINE. [Concomitant]
     Active Substance: LEVOTHYROXINE
  8. LOSARTAN. [Concomitant]
     Active Substance: LOSARTAN
  9. FOSINOPRIL [Suspect]
     Active Substance: FOSINOPRIL
     Dosage: 20 MILLIGRAM DAILY;
     Route: 065
  10. METOPROLOL. [Concomitant]
     Active Substance: METOPROLOL
  11. ATORVASTATIN [Concomitant]
     Active Substance: ATORVASTATIN
  12. TRIAMTERENE. [Concomitant]
     Active Substance: TRIAMTERENE
  13. CLOPIDOGREL [Concomitant]
     Active Substance: CLOPIDOGREL BISULFATE
  14. ZETIA [Concomitant]
     Active Substance: EZETIMIBE

REACTIONS (5)
  - Feeling abnormal [Unknown]
  - Cerebrovascular accident [Recovering/Resolving]
  - Thrombosis [Recovering/Resolving]
  - Aphasia [Recovering/Resolving]
  - Product physical issue [Unknown]

NARRATIVE: CASE EVENT DATE: 20180804
